FAERS Safety Report 14611423 (Version 1)
Quarter: 2018Q1

REPORT INFORMATION
  Report Type: Spontaneous
  Country: NO (occurrence: NO)
  Receive Date: 20180308
  Receipt Date: 20180308
  Transmission Date: 20180509
  Serious: Yes (Other)
  Sender: FDA-Public Use
  Company Number: NO-AMGEN-NORSP2018029854

PATIENT
  Sex: Male
  Weight: 75 kg

DRUGS (3)
  1. REPATHA [Suspect]
     Active Substance: EVOLOCUMAB
     Indication: TYPE IIA HYPERLIPIDAEMIA
     Dosage: 140 MG, QMO
     Route: 065
     Dates: start: 20171118
  2. PSYLLIUM HUSK. [Concomitant]
     Active Substance: PSYLLIUM HUSK
  3. PROBIOTICA [Concomitant]
     Active Substance: PROBIOTICS NOS
     Dosage: UNK

REACTIONS (8)
  - Oropharyngeal pain [Not Recovered/Not Resolved]
  - Depressive symptom [Unknown]
  - Rhinorrhoea [Not Recovered/Not Resolved]
  - Somnolence [Not Recovered/Not Resolved]
  - Nasopharyngitis [Not Recovered/Not Resolved]
  - Increased tendency to bruise [Unknown]
  - Headache [Not Recovered/Not Resolved]
  - Haemorrhagic diathesis [Unknown]

NARRATIVE: CASE EVENT DATE: 20171119
